FAERS Safety Report 7937634-3 (Version None)
Quarter: 2011Q4

REPORT INFORMATION
  Report Type: 
  Country: None (occurrence: None)
  Receive Date: 20111123
  Receipt Date: 20111109
  Transmission Date: 20120403
  Serious: Yes (Hospitalization, Other)
  Sender: FDA-Public Use
  Company Number: PHFR2011IE01049

PATIENT
  Sex: Male

DRUGS (2)
  1. CLOZARIL [Suspect]
     Dosage: 500 MG, UNK
     Route: 048
     Dates: start: 19960429
  2. CLOZARIL [Suspect]
     Indication: SCHIZOPHRENIA
     Dosage: UNK MG, UNK
     Route: 048
     Dates: start: 19960423

REACTIONS (6)
  - PNEUMONIA INFLUENZAL [None]
  - ABDOMINAL PAIN LOWER [None]
  - LOWER RESPIRATORY TRACT INFECTION [None]
  - BODY TEMPERATURE INCREASED [None]
  - COUGH [None]
  - TACHYCARDIA [None]
